FAERS Safety Report 15723774 (Version 1)
Quarter: 2018Q4

REPORT INFORMATION
  Report Type: Report from Study
  Country: None (occurrence: US)
  Receive Date: 20181214
  Receipt Date: 20181214
  Transmission Date: 20190205
  Serious: Yes (Other)
  Sender: FDA-Public Use
  Company Number: US-ABBVIE-18S-163-2587330-00

PATIENT
  Age: 63 Year
  Sex: Female

DRUGS (1)
  1. CREON [Suspect]
     Active Substance: PANCRELIPASE AMYLASE\PANCRELIPASE LIPASE\PANCRELIPASE PROTEASE
     Indication: PRODUCT USED FOR UNKNOWN INDICATION
     Route: 048

REACTIONS (11)
  - Gastrooesophageal reflux disease [Unknown]
  - Cerebrovascular disorder [Unknown]
  - Diabetes mellitus [Unknown]
  - Chronic kidney disease [Unknown]
  - Hyperparathyroidism [Unknown]
  - Pancreatitis chronic [Unknown]
  - Essential hypertension [Unknown]
  - Nicotine dependence [Unknown]
  - Pancreatitis acute [Unknown]
  - Hydronephrosis [Unknown]
  - Diarrhoea [Unknown]

NARRATIVE: CASE EVENT DATE: 20181128
